FAERS Safety Report 4804734-6 (Version None)
Quarter: 2005Q4

REPORT INFORMATION
  Report Type: 
  Country: None (occurrence: None)
  Receive Date: 20051014
  Receipt Date: 20051003
  Transmission Date: 20060501
  Serious: Yes (Other)
  Sender: FDA-Public Use
  Company Number: 2005125821

PATIENT
  Sex: Male
  Weight: 90.7194 kg

DRUGS (3)
  1. DILANTIN [Suspect]
     Indication: CONVULSION
     Dosage: ORAL
     Route: 048
     Dates: start: 20000101
  2. PHENOBARBITAL TAB [Suspect]
     Indication: CONVULSION
  3. CARBATROL [Suspect]
     Indication: CONVULSION

REACTIONS (1)
  - GRAND MAL CONVULSION [None]
